FAERS Safety Report 11411978 (Version 1)
Quarter: 2015Q3

REPORT INFORMATION
  Report Type: Spontaneous
  Country: US (occurrence: US)
  Receive Date: 20150821
  Receipt Date: 20150821
  Transmission Date: 20151125
  Serious: No
  Sender: FDA-Public Use
  Company Number: US-ELI_LILLY_AND_COMPANY-US201201003107

PATIENT
  Sex: Female

DRUGS (3)
  1. HUMULIN R [Suspect]
     Active Substance: INSULIN HUMAN
     Indication: DIABETES MELLITUS
     Dosage: 2 U, QD
  2. HUMULIN R [Suspect]
     Active Substance: INSULIN HUMAN
     Dosage: 10 U, QD
  3. HUMULIN R [Suspect]
     Active Substance: INSULIN HUMAN
     Dosage: 4 U, QD

REACTIONS (9)
  - Hypersensitivity [Unknown]
  - Malaise [Unknown]
  - Food allergy [Unknown]
  - Animal bite [Unknown]
  - Pain [Unknown]
  - Stress [Unknown]
  - Drug hypersensitivity [Unknown]
  - Malaise [Unknown]
  - Expired product administered [Unknown]

NARRATIVE: CASE EVENT DATE: 2011
